FAERS Safety Report 17072920 (Version 1)
Quarter: 2019Q4

REPORT INFORMATION
  Report Type: Spontaneous
  Country: US (occurrence: US)
  Receive Date: 20191125
  Receipt Date: 20191125
  Transmission Date: 20200122
  Serious: No
  Sender: FDA-Public Use
  Company Number: US-BIOGEN-2019BI00809010

PATIENT
  Sex: Male

DRUGS (3)
  1. SPINRAZA [Suspect]
     Active Substance: NUSINERSEN
     Indication: SPINAL MUSCULAR ATROPHY
     Dosage: LOADING DOSES: FIRST 3 LOADING DOSES EVERY 4 DAYS
     Route: 037
     Dates: start: 20170516
  2. SPINRAZA [Suspect]
     Active Substance: NUSINERSEN
     Dosage: MAINTENANCE DOSE
     Route: 037
  3. SPINRAZA [Suspect]
     Active Substance: NUSINERSEN
     Dosage: 4TH LOADING DOSE
     Route: 037

REACTIONS (1)
  - Anxiety [Unknown]
